FAERS Safety Report 6195178-6 (Version None)
Quarter: 2009Q2

REPORT INFORMATION
  Report Type: 
  Country: None (occurrence: None)
  Receive Date: 20090515
  Receipt Date: 20090429
  Transmission Date: 20091009
  Serious: Yes (Other)
  Sender: FDA-Public Use
  Company Number: SPI200900136

PATIENT
  Age: 23 Year
  Sex: Female
  Weight: 63.9 kg

DRUGS (4)
  1. AMITIZA [Suspect]
     Indication: ABDOMINAL PAIN
     Dosage: 24 MCG, BID, ORAL
     Route: 048
     Dates: start: 20090401, end: 20090401
  2. AMITIZA [Suspect]
     Indication: CONSTIPATION
     Dosage: 24 MCG, BID, ORAL
     Route: 048
     Dates: start: 20090401, end: 20090401
  3. NEXIUM   /01479303/ (ESOMEPRAZOLE SODIUM) [Concomitant]
  4. CARBATROL [Concomitant]

REACTIONS (2)
  - CONVULSION [None]
  - DRUG INEFFECTIVE [None]
